FAERS Safety Report 5638144-9 (Version None)
Quarter: 2008Q1

REPORT INFORMATION
  Report Type: 
  Country: None (occurrence: None)
  Receive Date: 20080131
  Receipt Date: 20071213
  Transmission Date: 20080703
  Serious: No
  Sender: FDA-Public Use
  Company Number: 163-21880-07110327

PATIENT
  Age: 75 Year
  Sex: Male

DRUGS (2)
  1. REVLIMID [Suspect]
     Indication: MYELODYSPLASTIC SYNDROME
     Dosage: 5, 10  MG, 1 IN 1 D, ORAL
     Route: 048
     Dates: start: 20070614, end: 20070801
  2. REVLIMID [Suspect]
     Indication: MYELODYSPLASTIC SYNDROME
     Dosage: 5, 10  MG, 1 IN 1 D, ORAL
     Route: 048
     Dates: start: 20070801, end: 20071001

REACTIONS (3)
  - BLOOD CREATININE INCREASED [None]
  - FULL BLOOD COUNT ABNORMAL [None]
  - RENAL FUNCTION TEST ABNORMAL [None]
